FAERS Safety Report 15104682 (Version 8)
Quarter: 2020Q3

REPORT INFORMATION
  Report Type: Report from Study
  Country: CO (occurrence: CO)
  Receive Date: 20180703
  Receipt Date: 20200821
  Transmission Date: 20201102
  Serious: Yes (Life-Threatening, Hospitalization)
  Sender: FDA-Public Use
  Company Number: PHHY2018CO033522

PATIENT
  Age: 32 Year
  Sex: Female
  Weight: 46 kg

DRUGS (2)
  1. TASIGNA [Suspect]
     Active Substance: NILOTINIB
     Indication: CHRONIC MYELOID LEUKAEMIA
     Dosage: 800 MG, QD
     Route: 048
     Dates: start: 20080424
  2. TASIGNA [Suspect]
     Active Substance: NILOTINIB
     Dosage: UNK
     Route: 065

REACTIONS (8)
  - Feeling abnormal [Unknown]
  - Inappropriate schedule of product administration [Unknown]
  - Leukocytosis [Unknown]
  - Spleen disorder [Unknown]
  - Haemoglobin decreased [Unknown]
  - Dizziness [Unknown]
  - Headache [Unknown]
  - Myalgia [Unknown]

NARRATIVE: CASE EVENT DATE: 20190912
